FAERS Safety Report 10083839 (Version 2)
Quarter: 2014Q2

REPORT INFORMATION
  Report Type: Spontaneous
  Country: US (occurrence: US)
  Receive Date: 20140417
  Receipt Date: 20140506
  Transmission Date: 20141212
  Serious: Yes (Disabling)
  Sender: FDA-Public Use
  Company Number: US-PFIZER INC-2014106712

PATIENT
  Age: 62 Year
  Sex: Female

DRUGS (9)
  1. PRISTIQ [Suspect]
     Dosage: 100 MG, 1X/DAY
  2. KLONOPIN [Concomitant]
     Dosage: 1 MG, 3X/DAY (AS NEEDED)
  3. SYNTHROID [Concomitant]
     Dosage: 200 UG, 1X/DAY
  4. SINEQUAN [Concomitant]
     Dosage: 50 MG, QHS
  5. TRICOR [Concomitant]
     Dosage: 145 MG, QHS
  6. LOVASTATIN [Concomitant]
     Dosage: 20 MG, QHS
  7. DIOVAN HCT [Concomitant]
     Dosage: HYDROCHLOROTHIAZIDE 12.5/VALSARTAN 80, 1X/DAY
  8. BYSTOLIC [Concomitant]
     Dosage: 5 QHS
  9. AMBIEN [Concomitant]
     Dosage: 10 AS NEED

REACTIONS (1)
  - Foot fracture [Unknown]
